FAERS Safety Report 11519146 (Version 1)
Quarter: 2015Q3

REPORT INFORMATION
  Report Type: Spontaneous
  Country: US (occurrence: US)
  Receive Date: 20150917
  Receipt Date: 20150917
  Transmission Date: 20151125
  Serious: Yes (Other)
  Sender: FDA-Public Use
  Company Number: PHHY2015US111030

PATIENT
  Age: 56 Year
  Sex: Female

DRUGS (2)
  1. IMATINIB [Suspect]
     Active Substance: IMATINIB
     Indication: CHRONIC MYELOID LEUKAEMIA
     Route: 065
  2. NILOTINIB [Suspect]
     Active Substance: NILOTINIB
     Indication: CHRONIC MYELOID LEUKAEMIA
     Dosage: 400 MG, BID
     Route: 065

REACTIONS (9)
  - Dermatitis allergic [Unknown]
  - Rash [Unknown]
  - Eyelid folliculitis [Unknown]
  - Pruritus [Unknown]
  - Alopecia [Unknown]
  - Drug eruption [Unknown]
  - Drug resistance [Unknown]
  - Lichenoid keratosis [Unknown]
  - Folliculitis [Unknown]
